FAERS Safety Report 8782406 (Version 2)
Quarter: 2013Q4

REPORT INFORMATION
  Report Type: Spontaneous
  Country: ES (occurrence: ES)
  Receive Date: 20120913
  Receipt Date: 20131031
  Transmission Date: 20140711
  Serious: Yes (Hospitalization)
  Sender: FDA-Public Use
  Company Number: ES-MERCK-1209ESP005283

PATIENT
  Age: 21 Year
  Sex: Male

DRUGS (6)
  1. ATREXEL [Suspect]
     Route: 042
     Dates: start: 20120113, end: 20120113
  2. DEXAMETHASONE [Suspect]
     Route: 042
     Dates: start: 20120113, end: 20120113
  3. KYTRIL [Suspect]
     Indication: VOMITING
     Dosage: 3 MG
     Route: 042
     Dates: start: 20120113, end: 20120113
  4. APREPITANT [Suspect]
     Indication: VOMITING
     Route: 042
     Dates: start: 20120113, end: 20120113
  5. TRAMADOL HYDROCHLORIDE [Concomitant]
     Indication: PAIN
     Dates: start: 20120113
  6. METOCLOPRAMIDE HYDROCHLORIDE [Concomitant]
     Indication: VOMITING
     Dates: start: 20120113

REACTIONS (1)
  - Hepatitis [Recovered/Resolved]
